FAERS Safety Report 4627071-1 (Version None)
Quarter: 2005Q1

REPORT INFORMATION
  Report Type: 
  Country: None (occurrence: None)
  Receive Date: 20050331
  Receipt Date: 20050323
  Transmission Date: 20050727
  Serious: Yes (Death)
  Sender: FDA-Public Use
  Company Number: 2005SE01757

PATIENT
  Age: 48 Year
  Sex: Female

DRUGS (5)
  1. SEROQUEL [Suspect]
     Indication: PSYCHOTIC DISORDER
     Dosage: 800 MG DAILY PO
     Route: 048
     Dates: start: 20040401
  2. SEROQUEL [Suspect]
     Indication: PSYCHOTIC DISORDER
     Dosage: 12 GR ONCE PO
     Route: 048
     Dates: start: 20050223
  3. OXAZEPAM [Concomitant]
  4. CITALOPRAM HYDROBROMIDE [Concomitant]
  5. NIMADORM ZOLPIDEM [Concomitant]

REACTIONS (2)
  - COMPLETED SUICIDE [None]
  - INTENTIONAL MISUSE [None]
